FAERS Safety Report 23961556 (Version 1)
Quarter: 2024Q2

REPORT INFORMATION
  Report Type: Spontaneous
  Country: US (occurrence: US)
  Receive Date: 20240611
  Receipt Date: 20240611
  Transmission Date: 20240716
  Serious: No
  Sender: FDA-Public Use
  Company Number: US-BAYER-2024A083572

PATIENT
  Age: 69 Year
  Sex: Male

DRUGS (1)
  1. ALEVE [Suspect]
     Active Substance: NAPROXEN SODIUM
     Indication: Pain
     Dosage: 1 OR 2 TABLETS
     Route: 048
     Dates: start: 20240601, end: 20240604

REACTIONS (1)
  - Expired product administered [Unknown]
